FAERS Safety Report 9113397 (Version 1)
Quarter: 2013Q1

REPORT INFORMATION
  Report Type: Report from Study
  Country: US (occurrence: US)
  Receive Date: 20130129
  Receipt Date: 20130129
  Transmission Date: 20140127
  Serious: No
  Sender: FDA-Public Use
  Company Number: US-ABBOTT-12P-163-0918901-00

PATIENT
  Age: 48 Year
  Sex: Female

DRUGS (7)
  1. HUMIRA 40 MG/0.8 ML PEN [Suspect]
     Indication: CROHN^S DISEASE
     Dates: start: 201203
  2. HUMIRA 40 MG/0.8 ML PEN [Suspect]
     Dates: start: 20120328
  3. HUMIRA 40 MG/0.8 ML PEN [Suspect]
     Dates: start: 20120314
  4. CLARITIN-D [Concomitant]
     Indication: SEASONAL ALLERGY
     Dosage: AS NEEDED
  5. MUCINEX [Concomitant]
     Indication: SEASONAL ALLERGY
     Dosage: AS NEEDED
  6. FIORICET [Concomitant]
     Indication: MIGRAINE
     Dosage: ONE OR TWO TABLETS Q 4 HOURS PRN
  7. VICODIN [Concomitant]
     Indication: BACK PAIN
     Dosage: 5 ONE HALF TABLET PRN

REACTIONS (8)
  - Weight increased [Unknown]
  - Asthenia [Not Recovered/Not Resolved]
  - Injection site bruising [Not Recovered/Not Resolved]
  - Haematochezia [Not Recovered/Not Resolved]
  - Migraine [Not Recovered/Not Resolved]
  - Pain [Not Recovered/Not Resolved]
  - Diarrhoea [Unknown]
  - Pain [Unknown]
